FAERS Safety Report 7031992-2 (Version None)
Quarter: 2010Q4

REPORT INFORMATION
  Report Type: 
  Country: None (occurrence: None)
  Receive Date: 20101005
  Receipt Date: 20100927
  Transmission Date: 20110411
  Serious: Yes (Other)
  Sender: FDA-Public Use
  Company Number: B0677282A

PATIENT
  Age: 37 Year
  Sex: Female

DRUGS (5)
  1. FLUTICASONE PROPIONATE+SALMETEROL XINAFOATE [Suspect]
     Indication: ASTHMA
     Dosage: AS REQUIRED
  2. LOPINAVIR/RITONAVIR [Suspect]
     Indication: HIV INFECTION
     Dosage: TWICE PER DAY
     Dates: start: 20071201
  3. TENOFOVIR [Concomitant]
  4. EMTRICITABINE [Concomitant]
  5. FOSAMPRENAVIR [Concomitant]

REACTIONS (2)
  - CUSHING'S SYNDROME [None]
  - IATROGENIC INJURY [None]
